FAERS Safety Report 20000891 (Version 1)
Quarter: 2021Q4

REPORT INFORMATION
  Report Type: Spontaneous
  Country: US (occurrence: US)
  Receive Date: 20211026
  Receipt Date: 20211026
  Transmission Date: 20220303
  Serious: Yes (unspecified)
  Sender: FDA-Public Use
  Company Number: None

PATIENT
  Age: 29 Year
  Sex: Female
  Weight: 83.91 kg

DRUGS (1)
  1. MIRENA [Suspect]
     Active Substance: LEVONORGESTREL
     Dates: start: 20200924, end: 20210211

REACTIONS (5)
  - Arthralgia [None]
  - Arthralgia [None]
  - Costochondritis [None]
  - Complication of device insertion [None]
  - Procedural haemorrhage [None]

NARRATIVE: CASE EVENT DATE: 20201008
